FAERS Safety Report 13507810 (Version 3)
Quarter: 2017Q2

REPORT INFORMATION
  Report Type: Spontaneous
  Country: US (occurrence: US)
  Receive Date: 20170503
  Receipt Date: 20170609
  Transmission Date: 20170830
  Serious: Yes (Hospitalization, Other)
  Sender: FDA-Public Use
  Company Number: US-PFIZER INC-2017186525

PATIENT
  Age: 55 Year
  Sex: Female

DRUGS (3)
  1. IBRANCE [Suspect]
     Active Substance: PALBOCICLIB
     Indication: BREAST CANCER
     Dosage: 100 MG, CYCLIC (DAILY DAYS 1-21 OF 28 DAY CYCLE)
     Route: 048
     Dates: start: 20161217
  2. IBRANCE [Suspect]
     Active Substance: PALBOCICLIB
     Dosage: 100 MG, CYCLIC (1 DAILY FOR 21 DAYS)
     Route: 048
     Dates: start: 20170118
  3. TOPROL XL [Concomitant]
     Active Substance: METOPROLOL SUCCINATE
     Dosage: 75 MG, 2X/DAY

REACTIONS (2)
  - Leukopenia [Recovered/Resolved]
  - Pulmonary embolism [Recovered/Resolved]

NARRATIVE: CASE EVENT DATE: 20170208
